FAERS Safety Report 17293929 (Version 1)
Quarter: 2020Q1

REPORT INFORMATION
  Report Type: Spontaneous
  Country: US (occurrence: US)
  Receive Date: 20200120
  Receipt Date: 20200120
  Transmission Date: 20200409
  Serious: Yes (Life-Threatening, Hospitalization)
  Sender: FDA-Public Use
  Company Number: None

PATIENT
  Age: 32 Year
  Sex: Female
  Weight: 92.25 kg

DRUGS (1)
  1. CYTOTEC [Suspect]
     Active Substance: MISOPROSTOL
     Indication: LABOUR INDUCTION
     Dates: start: 20191213, end: 20191214

REACTIONS (8)
  - Off label use [None]
  - Lactation disorder [None]
  - Uterine rupture [None]
  - Product used for unknown indication [None]
  - Exposure during pregnancy [None]
  - Tremor [None]
  - Caesarean section [None]
  - Uterine haemorrhage [None]

NARRATIVE: CASE EVENT DATE: 20191214
